FAERS Safety Report 14121733 (Version 2)
Quarter: 2017Q4

REPORT INFORMATION
  Report Type: Spontaneous
  Country: US (occurrence: US)
  Receive Date: 20171024
  Receipt Date: 20171030
  Transmission Date: 20180321
  Serious: Yes (Other)
  Sender: FDA-Public Use
  Company Number: US-INCYTE CORPORATION-2017IN008943

PATIENT

DRUGS (1)
  1. JAKAFI [Suspect]
     Active Substance: RUXOLITINIB
     Indication: GRAFT VERSUS HOST DISEASE
     Dosage: NOT SPECIFIED
     Route: 048
     Dates: end: 20171010

REACTIONS (3)
  - Drug dose omission [Unknown]
  - Off label use [Unknown]
  - Acute myeloid leukaemia [Unknown]
